FAERS Safety Report 9026470 (Version 1)
Quarter: 2013Q1

REPORT INFORMATION
  Report Type: Spontaneous
  Country: GB (occurrence: None)
  Receive Date: 20130107
  Receipt Date: 20130107
  Transmission Date: 20140127
  Serious: Yes (Hospitalization)
  Sender: FDA-Public Use
  Company Number: GER/UKI/12/0027296

PATIENT
  Age: 73 Year
  Sex: Female

DRUGS (4)
  1. CIPROFLOXACIN (CIPROFLOXACIN) [Suspect]
     Indication: PNEUMONIA
     Dates: start: 20110215, end: 20110303
  2. OMEPRAZOLE (OMEPRAZOLE) [Suspect]
  3. PIPERACILLIN AND TAZOBACTAM [Suspect]
     Route: 042
     Dates: end: 20110504
  4. TAZOCIN [Suspect]
     Dates: start: 20110211, end: 20110215

REACTIONS (3)
  - Clostridium difficile infection [None]
  - Diarrhoea [None]
  - Megacolon [None]
